FAERS Safety Report 14182268 (Version 1)
Quarter: 2017Q4

REPORT INFORMATION
  Report Type: Spontaneous
  Country: US (occurrence: US)
  Receive Date: 20171113
  Receipt Date: 20171113
  Transmission Date: 20180321
  Serious: No
  Sender: FDA-Public Use
  Company Number: US-SHIRE-US201717989

PATIENT
  Weight: 56.69 kg

DRUGS (3)
  1. XIIDRA [Suspect]
     Active Substance: LIFITEGRAST
     Indication: DRY EYE
     Dosage: 1 GTT OU; BID OPHTHALMIC, 2X/DAY:BID
     Route: 047
     Dates: start: 20170707
  2. PROGESTERONE. [Concomitant]
     Active Substance: PROGESTERONE
     Indication: HORMONE REPLACEMENT THERAPY
  3. XIIDRA [Suspect]
     Active Substance: LIFITEGRAST
     Indication: EYE HAEMORRHAGE

REACTIONS (5)
  - Exposure via skin contact [Unknown]
  - Drug ineffective [Unknown]
  - Product container issue [Unknown]
  - Instillation site erythema [Unknown]
  - Instillation site irritation [Unknown]
